FAERS Safety Report 5015864-0 (Version None)
Quarter: 2006Q2

REPORT INFORMATION
  Report Type: 
  Country: None (occurrence: None)
  Receive Date: 20060526
  Receipt Date: 20060518
  Transmission Date: 20061013
  Serious: Yes (Hospitalization)
  Sender: FDA-Public Use
  Company Number: L06-CAN-00063-01

PATIENT
  Age: 53 Year
  Sex: Male

DRUGS (5)
  1. CELEXA [Suspect]
     Indication: DEPRESSION
     Dosage: 20 MG QD PO
     Route: 048
  2. OLANZAPINE [Concomitant]
  3. NADOLOL [Concomitant]
  4. LORAZEPAM [Concomitant]
  5. ZOPICLONE [Concomitant]

REACTIONS (9)
  - CONDITION AGGRAVATED [None]
  - DEPRESSION [None]
  - IMPAIRED SELF-CARE [None]
  - PROCEDURAL HYPERTENSION [None]
  - PSYCHOMOTOR RETARDATION [None]
  - PULMONARY OEDEMA [None]
  - SUICIDAL IDEATION [None]
  - TACHYCARDIA [None]
  - THERAPY NON-RESPONDER [None]
